FAERS Safety Report 6285164-X (Version None)
Quarter: 2009Q3

REPORT INFORMATION
  Report Type: 
  Country: None (occurrence: None)
  Receive Date: 20090727
  Receipt Date: 20090715
  Transmission Date: 20100115
  Serious: Yes (Hospitalization, Disabling, Other)
  Sender: FDA-Public Use
  Company Number: PHEH2009US00889

PATIENT
  Sex: Female

DRUGS (6)
  1. ZOMETA [Suspect]
     Indication: NEOPLASM MALIGNANT
  2. CALCIUM [Concomitant]
  3. CHEMOTHERAPEUTICS NOS [Concomitant]
  4. PLASMAPHERESIS [Concomitant]
  5. DEXAMETHASONE [Concomitant]
  6. THALIDOMIDE [Concomitant]

REACTIONS (24)
  - ANHEDONIA [None]
  - ANXIETY [None]
  - AORTIC VALVE INCOMPETENCE [None]
  - DISCOMFORT [None]
  - DYSPHAGIA [None]
  - DYSPNOEA [None]
  - EMOTIONAL DISTRESS [None]
  - ENDOCARDITIS [None]
  - HODGKIN'S DISEASE [None]
  - HYPOXIA [None]
  - INFECTION [None]
  - INFLUENZA LIKE ILLNESS [None]
  - INJURY [None]
  - LUNG INFILTRATION [None]
  - MENTAL DISORDER [None]
  - OSTEONECROSIS [None]
  - PAIN [None]
  - PHYSICAL DISABILITY [None]
  - PNEUMONIA [None]
  - QUALITY OF LIFE DECREASED [None]
  - SCAR [None]
  - SPINAL OSTEOARTHRITIS [None]
  - SWELLING [None]
  - UPPER RESPIRATORY TRACT INFECTION [None]
